FAERS Safety Report 4604613-3 (Version None)
Quarter: 2005Q2

REPORT INFORMATION
  Report Type: 
  Country: None (occurrence: None)
  Receive Date: 20050224
  Receipt Date: 20041110
  Transmission Date: 20051028
  Serious: No
  Sender: FDA-Public Use
  Company Number: SU-2004-002827

PATIENT
  Age: 77 Year
  Sex: Female
  Weight: 102.0593 kg

DRUGS (5)
  1. BENICAR [Suspect]
     Indication: HYPERTENSION
     Dosage: 40 MG QD PO
     Route: 048
     Dates: start: 20020113, end: 20040910
  2. VITAMINS [Concomitant]
  3. LEVOXYL [Concomitant]
  4. CALTRATE [Concomitant]
  5. SPIRONOLACTONE [Concomitant]

REACTIONS (2)
  - ARTHRALGIA [None]
  - MUSCLE SPASMS [None]
